FAERS Safety Report 22219380 (Version 7)
Quarter: 2024Q1

REPORT INFORMATION
  Report Type: Report from Study
  Country: US (occurrence: US)
  Receive Date: 20230417
  Receipt Date: 20240226
  Transmission Date: 20240410
  Serious: Yes (Hospitalization, Other)
  Sender: FDA-Public Use
  Company Number: US-UCBSA-2023018541

PATIENT
  Age: 18 Year
  Sex: Male
  Weight: 54 kg

DRUGS (11)
  1. FINTEPLA [Suspect]
     Active Substance: FENFLURAMINE
     Indication: Severe myoclonic epilepsy of infancy
     Dosage: 4 MILLILITER, 2X/DAY (BID)
     Route: 048
     Dates: start: 20210805
  2. FINTEPLA [Suspect]
     Active Substance: FENFLURAMINE
     Indication: Seizure
     Dosage: 4 MILLILITER, 2X/DAY (BID)
     Route: 048
     Dates: start: 20211115
  3. FINTEPLA [Suspect]
     Active Substance: FENFLURAMINE
     Indication: Epilepsy
     Dosage: 0.31 MG/KG/DAY AND 17.6 MG/DAY
     Route: 048
     Dates: start: 202111
  4. FINTEPLA [Suspect]
     Active Substance: FENFLURAMINE
     Dosage: 0.32 MG/KG/DAY
     Route: 048
     Dates: start: 202111
  5. FINTEPLA [Suspect]
     Active Substance: FENFLURAMINE
     Dosage: 4 MILLILITER, 2X/DAY (BID)
     Route: 048
  6. FINTEPLA [Suspect]
     Active Substance: FENFLURAMINE
     Dosage: 3 ML TWICE A DAY FOR 7 DAYS, 2 ML TWICE A DAY FOR 7 DAYS, 1 ML TWICE A DAY FOR 7 DAYS THEN STOP
     Route: 048
     Dates: end: 20231109
  7. LEVETIRACETAM [Concomitant]
     Active Substance: LEVETIRACETAM
     Indication: Seizure
     Dosage: UNK
  8. FYCOMPA [Concomitant]
     Active Substance: PERAMPANEL
     Indication: Epilepsy
     Dosage: 8 MILLIGRAM, 2X/DAY (BID)
     Route: 048
     Dates: start: 20221031
  9. EPIDIOLEX [Concomitant]
     Active Substance: CANNABIDIOL
     Indication: Epilepsy
     Dosage: 500 MILLIGRAM, 2X/DAY (BID)
     Route: 048
     Dates: start: 20211119
  10. CLOBAZAM [Concomitant]
     Active Substance: CLOBAZAM
     Indication: Epilepsy
     Dosage: 15 MILLIGRAM, 2X/DAY (BID)
     Dates: start: 2021
  11. PHENYTOIN [Concomitant]
     Active Substance: PHENYTOIN
     Indication: Epilepsy
     Dosage: 100 MILLIGRAM, 2X/DAY (BID)
     Dates: start: 2021, end: 2022

REACTIONS (10)
  - Seizure [Recovering/Resolving]
  - Tricuspid valve incompetence [Unknown]
  - Dehydration [Recovered/Resolved]
  - Catatonia [Recovered/Resolved]
  - Echocardiogram abnormal [Not Recovered/Not Resolved]
  - Gait disturbance [Not Recovered/Not Resolved]
  - Aggression [Not Recovered/Not Resolved]
  - Product use in unapproved indication [Unknown]
  - Product availability issue [Unknown]
  - Therapy interrupted [Unknown]

NARRATIVE: CASE EVENT DATE: 20220906
